FAERS Safety Report 24532654 (Version 1)
Quarter: 2024Q4

REPORT INFORMATION
  Report Type: Spontaneous
  Country: US (occurrence: US)
  Receive Date: 20241022
  Receipt Date: 20241022
  Transmission Date: 20250115
  Serious: Yes (Other)
  Sender: RANBAXY
  Company Number: US-SUN PHARMACEUTICAL INDUSTRIES LTD-2024R1-474730

PATIENT
  Age: 87 Year
  Sex: Male

DRUGS (2)
  1. CAPECITABINE [Suspect]
     Active Substance: CAPECITABINE
     Indication: Pancreatic neuroendocrine tumour metastatic
     Dosage: UNK (FOUR CYCLES)
     Route: 065
  2. TEMOZOLOMIDE [Suspect]
     Active Substance: TEMOZOLOMIDE
     Indication: Pancreatic neuroendocrine tumour metastatic
     Dosage: UNK (FOUR CYCLES)
     Route: 065

REACTIONS (1)
  - Neoplasm progression [Unknown]
